FAERS Safety Report 4344457-3 (Version None)
Quarter: 2004Q2

REPORT INFORMATION
  Report Type: 
  Country: None (occurrence: None)
  Receive Date: 20040422
  Receipt Date: 20040414
  Transmission Date: 20050107
  Serious: Yes (Other)
  Sender: FDA-Public Use
  Company Number: PHBS2004US05127

PATIENT
  Age: 60 Year
  Sex: Male

DRUGS (4)
  1. CYCLOSPORINE [Suspect]
     Indication: HEART TRANSPLANT
     Route: 065
  2. AZATHIOPRINE [Suspect]
     Indication: HEART TRANSPLANT
     Route: 065
  3. PREDNISONE [Suspect]
     Indication: HEART TRANSPLANT
     Route: 065
  4. TACROLIMUS [Suspect]
     Indication: HEART TRANSPLANT
     Route: 065

REACTIONS (7)
  - DEAFNESS [None]
  - EPSTEIN-BARR VIRUS INFECTION [None]
  - GOUT [None]
  - HYPERTENSION [None]
  - LYMPHOPROLIFERATIVE DISORDER [None]
  - PEPTIC ULCER [None]
  - RENAL FAILURE CHRONIC [None]
